FAERS Safety Report 5017896-5 (Version None)
Quarter: 2006Q2

REPORT INFORMATION
  Report Type: 
  Country: None (occurrence: None)
  Receive Date: 20060602
  Receipt Date: 20060602
  Transmission Date: 20061013
  Serious: Yes (Hospitalization)
  Sender: FDA-Public Use
  Company Number: None

PATIENT
  Sex: Female
  Weight: 68 kg

DRUGS (4)
  1. TINZAPARIN, PHARMION [Suspect]
     Indication: GLIOBLASTOMA MULTIFORME
     Dosage: 4500IU QD SC
     Route: 058
     Dates: start: 20060506, end: 20060508
  2. TINZAPARIN, PHARMION [Suspect]
     Indication: THROMBOSIS PROPHYLAXIS
     Dosage: 4500IU QD SC
     Route: 058
     Dates: start: 20060506, end: 20060508
  3. IRINOTECAN [Concomitant]
  4. TEMODAR [Concomitant]

REACTIONS (5)
  - DIARRHOEA [None]
  - NAUSEA [None]
  - ORAL CANDIDIASIS [None]
  - PANCYTOPENIA [None]
  - PYREXIA [None]
